FAERS Safety Report 4381647-8 (Version None)
Quarter: 2004Q2

REPORT INFORMATION
  Report Type: 
  Country: None (occurrence: None)
  Receive Date: 20040603
  Receipt Date: 20030902
  Transmission Date: 20050107
  Serious: Yes (Other)
  Sender: FDA-Public Use
  Company Number: 200317853US

PATIENT
  Age: 82 Year
  Sex: Male

DRUGS (7)
  1. ENOXAPARIN SODIUM [Suspect]
     Indication: MYOCARDIAL INFARCTION
     Dosage: 76 MG Q12H SC
     Route: 058
  2. CEFTRIAXONE SODIUM [Concomitant]
  3. DEXAMETHASONE TAB [Concomitant]
  4. PANTOPRAZOLE SODIUM [Concomitant]
  5. TYLENOL [Concomitant]
  6. MORPHINE [Concomitant]
  7. ATIVAN [Concomitant]

REACTIONS (1)
  - THROMBOCYTOPENIA [None]
